FAERS Safety Report 4928442-6 (Version None)
Quarter: 2006Q1

REPORT INFORMATION
  Report Type: 
  Country: None (occurrence: None)
  Receive Date: 20060228
  Receipt Date: 20051202
  Transmission Date: 20060701
  Serious: Yes (Hospitalization, Other)
  Sender: FDA-Public Use
  Company Number: US-MERCK-0512USA00481

PATIENT
  Age: 61 Year
  Sex: Male
  Weight: 116 kg

DRUGS (14)
  1. VIOXX [Suspect]
     Indication: ARTHRALGIA
     Route: 048
     Dates: start: 20030101, end: 20040507
  2. VICODIN ES [Concomitant]
     Route: 065
  3. PRANDIN [Concomitant]
     Route: 065
  4. COZAAR [Concomitant]
     Route: 048
  5. PRAVACHOL [Concomitant]
     Route: 065
  6. ZETIA [Concomitant]
     Route: 048
  7. ACTOS [Concomitant]
     Route: 065
  8. TOPAMAX [Concomitant]
     Route: 065
  9. LANTUS [Concomitant]
     Route: 065
  10. ALTACE [Concomitant]
     Route: 065
  11. VERAPAMIL [Concomitant]
     Route: 065
  12. NEURONTIN [Concomitant]
     Route: 065
  13. LEXAPRO [Concomitant]
     Route: 065
  14. METFORMIN HYDROCHLORIDE [Concomitant]
     Route: 065

REACTIONS (5)
  - AMNESIA [None]
  - ARTERIOSCLEROSIS [None]
  - CEREBROVASCULAR ACCIDENT [None]
  - MYOCARDIAL INFARCTION [None]
  - THROMBOSIS [None]
